FAERS Safety Report 24800477 (Version 1)
Quarter: 2025Q1

REPORT INFORMATION
  Report Type: Spontaneous
  Country: FR (occurrence: FR)
  Receive Date: 20250102
  Receipt Date: 20250102
  Transmission Date: 20250408
  Serious: Yes (Other)
  Sender: TEVA
  Company Number: None

PATIENT
  Age: 40 Year
  Sex: Female
  Weight: 50.9 kg

DRUGS (15)
  1. VALGANCICLOVIR [Suspect]
     Active Substance: VALGANCICLOVIR
     Indication: Cytomegalovirus infection
     Route: 048
     Dates: start: 20230106, end: 20230123
  2. VALGANCICLOVIR [Suspect]
     Active Substance: VALGANCICLOVIR
     Indication: Cytomegalovirus infection
     Route: 048
     Dates: start: 20230123, end: 20230320
  3. VALGANCICLOVIR [Suspect]
     Active Substance: VALGANCICLOVIR
     Indication: Cytomegalovirus infection
     Route: 048
     Dates: start: 20230511
  4. VALGANCICLOVIR [Suspect]
     Active Substance: VALGANCICLOVIR
     Indication: Cytomegalovirus infection
     Route: 048
     Dates: start: 20230419, end: 20230510
  5. MYAMBUTOL [Concomitant]
     Active Substance: ETHAMBUTOL HYDROCHLORIDE
     Indication: Atypical mycobacterial infection
     Route: 048
  6. LEVOTHYROXINE [Concomitant]
     Active Substance: LEVOTHYROXINE
     Indication: Thyroid disorder
     Dosage: 100 MICROGRAMS, SCORED TABLET
     Route: 048
     Dates: start: 20230314
  7. PREDNISONE [Concomitant]
     Active Substance: PREDNISONE
     Indication: Product used for unknown indication
     Route: 048
     Dates: end: 20230602
  8. AMBISOME [Suspect]
     Active Substance: AMPHOTERICIN B
     Indication: Fungal infection
     Dosage: POWDER FOR SUSPENSION OF LIPOSOMES FOR INFUSION
     Route: 042
     Dates: start: 20230321, end: 20230427
  9. AMBISOME [Suspect]
     Active Substance: AMPHOTERICIN B
     Indication: Fungal infection
     Dosage: POWDER FOR SUSPENSION OF LIPOSOMES FOR INFUSION
     Route: 042
     Dates: start: 20230228, end: 20230310
  10. AMBISOME [Suspect]
     Active Substance: AMPHOTERICIN B
     Indication: Fungal infection
     Dosage: POWDER FOR SUSPENSION OF LIPOSOMES FOR INFUSION
     Route: 042
     Dates: start: 20221226
  11. ENOXAPARIN SODIUM [Concomitant]
     Active Substance: ENOXAPARIN SODIUM
     Indication: Product used for unknown indication
     Dosage: MAMMAL/PIG/GUTTUM MUCOSA
     Route: 065
     Dates: end: 20230602
  12. LAMPRENE [Concomitant]
     Active Substance: CLOFAZIMINE
     Indication: Atypical mycobacterial infection
     Route: 048
     Dates: start: 20230315
  13. TRIUMEQ [Suspect]
     Active Substance: ABACAVIR SULFATE\DOLUTEGRAVIR SODIUM\LAMIVUDINE
     Indication: HIV infection
     Dosage: 50 MG/600 MG/300 MG
     Route: 048
     Dates: start: 20230113
  14. ATOVAQUONE [Suspect]
     Active Substance: ATOVAQUONE
     Indication: Toxoplasmosis
     Dosage: 750 MG/5 ML, ORAL SUSPENSION IN SACHET-DOSE
     Route: 048
     Dates: start: 20221229, end: 20230505
  15. LEUCOVORIN CALCIUM [Concomitant]
     Active Substance: LEUCOVORIN CALCIUM
     Indication: Toxoplasmosis
     Route: 048

REACTIONS (1)
  - Metabolic acidosis [Not Recovered/Not Resolved]

NARRATIVE: CASE EVENT DATE: 20230206
